FAERS Safety Report 12566553 (Version 1)
Quarter: 2016Q3

REPORT INFORMATION
  Report Type: Spontaneous
  Country: US (occurrence: US)
  Receive Date: 20160718
  Receipt Date: 20160718
  Transmission Date: 20161109
  Serious: Yes (Other)
  Sender: FDA-Public Use
  Company Number: US-WATSON-2016-15384

PATIENT
  Age: 39 Year
  Sex: Female

DRUGS (4)
  1. PREDNISONE (WATSON LABORATORIES) [Suspect]
     Active Substance: PREDNISONE
     Dosage: 20 MG, DAILY
     Route: 065
  2. LEVOFLOXACIN. [Concomitant]
     Active Substance: LEVOFLOXACIN
     Indication: VIRAL INFECTION
     Dosage: UNK
     Route: 065
  3. PREDNISONE (WATSON LABORATORIES) [Suspect]
     Active Substance: PREDNISONE
     Indication: ASTHMA
     Dosage: 60 MG, DAILY
     Route: 065
  4. PREDNISONE (WATSON LABORATORIES) [Suspect]
     Active Substance: PREDNISONE
     Dosage: 40 MG, DAILY
     Route: 065

REACTIONS (1)
  - Porokeratosis [Recovered/Resolved]
